FAERS Safety Report 6846015-5 (Version None)
Quarter: 2010Q3

REPORT INFORMATION
  Report Type: 
  Country: None (occurrence: None)
  Receive Date: 20100715
  Receipt Date: 20070907
  Transmission Date: 20110219
  Serious: No
  Sender: FDA-Public Use
  Company Number: US-PFIZER INC-2007073069

PATIENT
  Sex: Male
  Weight: 92.272 kg

DRUGS (6)
  1. CHANTIX [Suspect]
     Indication: SMOKING CESSATION THERAPY
     Dates: start: 20070814
  2. NICOTROL [Suspect]
     Indication: SMOKING CESSATION THERAPY
  3. PREVACID [Concomitant]
  4. PAXIL CR [Concomitant]
  5. PRAVASTATIN [Concomitant]
  6. ACETYLSALICYLIC ACID [Concomitant]

REACTIONS (12)
  - ABNORMAL DREAMS [None]
  - BLOOD CHOLESTEROL INCREASED [None]
  - COLD SWEAT [None]
  - HEADACHE [None]
  - HYPERHIDROSIS [None]
  - INCORRECT DOSE ADMINISTERED [None]
  - NAUSEA [None]
  - OROPHARYNGEAL DISCOMFORT [None]
  - PALLOR [None]
  - POLLAKIURIA [None]
  - THINKING ABNORMAL [None]
  - TOBACCO USER [None]
